FAERS Safety Report 20485332 (Version 2)
Quarter: 2022Q3

REPORT INFORMATION
  Report Type: Spontaneous
  Country: US (occurrence: None)
  Receive Date: 20220217
  Receipt Date: 20220729
  Transmission Date: 20221026
  Serious: Yes (Other)
  Sender: FDA-Public Use
  Company Number: 2022A066197

PATIENT
  Age: 50 Year
  Sex: Female
  Weight: 136.1 kg

DRUGS (55)
  1. NEXIUM [Suspect]
     Active Substance: ESOMEPRAZOLE MAGNESIUM
     Indication: Gastrooesophageal reflux disease
     Route: 048
     Dates: start: 1999, end: 2019
  2. NEXIUM [Suspect]
     Active Substance: ESOMEPRAZOLE MAGNESIUM
     Indication: Gastrooesophageal reflux disease
     Route: 048
     Dates: start: 1999, end: 2019
  3. NEXIUM [Suspect]
     Active Substance: ESOMEPRAZOLE MAGNESIUM
     Indication: Gastrooesophageal reflux disease
     Dosage: GENERIC
     Route: 065
     Dates: start: 2019
  4. NEXIUM [Suspect]
     Active Substance: ESOMEPRAZOLE MAGNESIUM
     Indication: Gastrooesophageal reflux disease
     Dosage: GENERIC
     Route: 065
     Dates: start: 2019
  5. NEXIUM [Suspect]
     Active Substance: ESOMEPRAZOLE MAGNESIUM
     Indication: Gastrooesophageal reflux disease
     Route: 048
     Dates: start: 2001, end: 2019
  6. NEXIUM [Suspect]
     Active Substance: ESOMEPRAZOLE MAGNESIUM
     Indication: Gastrooesophageal reflux disease
     Route: 048
     Dates: start: 2001, end: 2019
  7. PRILOSEC [Suspect]
     Active Substance: OMEPRAZOLE MAGNESIUM
     Indication: Gastrooesophageal reflux disease
     Route: 048
     Dates: start: 1999, end: 2019
  8. PRILOSEC [Suspect]
     Active Substance: OMEPRAZOLE MAGNESIUM
     Indication: Gastrooesophageal reflux disease
     Route: 048
     Dates: start: 1999, end: 2019
  9. PRILOSEC [Suspect]
     Active Substance: OMEPRAZOLE MAGNESIUM
     Indication: Gastrooesophageal reflux disease
     Dosage: GENERIC
     Dates: start: 2011, end: 2019
  10. PRILOSEC [Suspect]
     Active Substance: OMEPRAZOLE MAGNESIUM
     Indication: Gastrooesophageal reflux disease
     Dosage: GENERIC
     Dates: start: 2011, end: 2019
  11. PRILOSEC [Suspect]
     Active Substance: OMEPRAZOLE MAGNESIUM
     Indication: Gastrooesophageal reflux disease
     Route: 048
     Dates: start: 1993, end: 2019
  12. PRILOSEC [Suspect]
     Active Substance: OMEPRAZOLE MAGNESIUM
     Indication: Gastrooesophageal reflux disease
     Route: 048
     Dates: start: 1993, end: 2019
  13. PREVACID [Suspect]
     Active Substance: LANSOPRAZOLE
     Indication: Gastrooesophageal reflux disease
     Route: 065
     Dates: start: 1999, end: 2019
  14. PREVACID [Suspect]
     Active Substance: LANSOPRAZOLE
     Indication: Gastrooesophageal reflux disease
     Route: 065
     Dates: start: 1999, end: 2019
  15. PREVACID [Suspect]
     Active Substance: LANSOPRAZOLE
     Indication: Gastrooesophageal reflux disease
     Route: 065
     Dates: start: 1995, end: 2019
  16. PREVACID [Suspect]
     Active Substance: LANSOPRAZOLE
     Indication: Gastrooesophageal reflux disease
     Route: 065
     Dates: start: 1995, end: 2019
  17. PROTONIX [Suspect]
     Active Substance: PANTOPRAZOLE SODIUM
     Indication: Gastrooesophageal reflux disease
     Route: 065
     Dates: start: 1999, end: 2019
  18. PROTONIX [Suspect]
     Active Substance: PANTOPRAZOLE SODIUM
     Indication: Gastrooesophageal reflux disease
     Route: 065
     Dates: start: 1999, end: 2019
  19. PROTONIX [Suspect]
     Active Substance: PANTOPRAZOLE SODIUM
     Indication: Gastrooesophageal reflux disease
     Dosage: GENERIC
     Dates: start: 2018, end: 2019
  20. PROTONIX [Suspect]
     Active Substance: PANTOPRAZOLE SODIUM
     Indication: Gastrooesophageal reflux disease
     Dosage: GENERIC
     Dates: start: 2018, end: 2019
  21. PROTONIX [Suspect]
     Active Substance: PANTOPRAZOLE SODIUM
     Indication: Gastrooesophageal reflux disease
     Route: 065
     Dates: start: 2000
  22. PROTONIX [Suspect]
     Active Substance: PANTOPRAZOLE SODIUM
     Indication: Gastrooesophageal reflux disease
     Route: 065
     Dates: start: 2000
  23. LEVAQUIN [Concomitant]
     Active Substance: LEVOFLOXACIN
     Indication: Infection
     Dates: start: 1999
  24. HYDROCHLOROTHIAZIDE [Concomitant]
     Active Substance: HYDROCHLOROTHIAZIDE
     Indication: Hypertension
     Dates: start: 2001, end: 2010
  25. PENICILLIN [Concomitant]
     Active Substance: PENICILLIN
     Indication: Infection
     Dates: start: 2008
  26. FUROSEMIDE [Concomitant]
     Active Substance: FUROSEMIDE
     Indication: Hypertension
     Dates: start: 2009
  27. DOXEPIN [Concomitant]
     Active Substance: DOXEPIN
     Indication: Hypertension
     Dates: start: 1999
  28. ACCUPRIL [Concomitant]
     Active Substance: QUINAPRIL HYDROCHLORIDE
     Indication: Hypertension
     Dates: start: 1999
  29. CEFTIN [Concomitant]
     Active Substance: CEFUROXIME AXETIL
     Indication: Infection
     Dates: start: 1999
  30. CELEBREX [Concomitant]
     Active Substance: CELECOXIB
     Indication: Pain
     Dates: start: 2000, end: 2001
  31. CIPRO [Concomitant]
     Active Substance: CIPROFLOXACIN HYDROCHLORIDE
     Indication: Infection
     Dates: start: 2000, end: 2002
  32. ZESTRIL [Concomitant]
     Active Substance: LISINOPRIL
     Indication: Hypertension
     Dates: start: 2000
  33. VIOXX [Concomitant]
     Active Substance: ROFECOXIB
     Indication: Pain
     Dates: start: 2001, end: 2004
  34. PROZAC [Concomitant]
     Active Substance: FLUOXETINE HYDROCHLORIDE
     Indication: Mental disability
     Dates: start: 1999, end: 2001
  35. FLUOXETINE [Concomitant]
     Active Substance: FLUOXETINE HYDROCHLORIDE
     Dates: start: 2001, end: 2004
  36. LITHIUM [Concomitant]
     Active Substance: LITHIUM
     Dates: start: 2003, end: 2004
  37. DIOVAN [Concomitant]
     Active Substance: VALSARTAN
     Indication: Hypertension
     Dates: start: 2002, end: 2004
  38. SPIRONOLACTONE [Concomitant]
     Active Substance: SPIRONOLACTONE
     Indication: Hypertension
     Dates: start: 2004
  39. BENICAR [Concomitant]
     Active Substance: OLMESARTAN MEDOXOMIL
     Indication: Hypertension
     Dates: start: 2011
  40. AZITHROMYCIN [Concomitant]
     Active Substance: AZITHROMYCIN
     Indication: Infection
     Dates: start: 2018
  41. LISINOPRIL [Concomitant]
     Active Substance: LISINOPRIL
     Indication: Hypertension
     Dates: start: 2017, end: 2019
  42. ASPIRIN [Concomitant]
     Active Substance: ASPIRIN
     Indication: Cardiac disorder
  43. MOTRIN [Concomitant]
     Active Substance: IBUPROFEN
     Indication: Pain
  44. CIMETIDINE [Concomitant]
     Active Substance: CIMETIDINE
  45. RANITIDINE [Concomitant]
     Active Substance: RANITIDINE
  46. TUMS [Concomitant]
     Active Substance: CALCIUM CARBONATE
  47. OXYCODONE [Concomitant]
     Active Substance: OXYCODONE
  48. ALPRAZOLAM [Concomitant]
     Active Substance: ALPRAZOLAM
  49. OMNICEF [Concomitant]
     Active Substance: CEFDINIR
  50. CLONIDINE [Concomitant]
     Active Substance: CLONIDINE
  51. AMBIEN [Concomitant]
     Active Substance: ZOLPIDEM TARTRATE
  52. CLARITIN [Concomitant]
     Active Substance: LORATADINE
  53. DIFUCAN [Concomitant]
  54. CARVEDILOL [Concomitant]
     Active Substance: CARVEDILOL
  55. TYLENOL [Concomitant]
     Active Substance: ACETAMINOPHEN

REACTIONS (3)
  - Acute kidney injury [Not Recovered/Not Resolved]
  - Chronic kidney disease [Unknown]
  - Gastrooesophageal reflux disease [Not Recovered/Not Resolved]

NARRATIVE: CASE EVENT DATE: 20110101
